FAERS Safety Report 16379461 (Version 1)
Quarter: 2019Q2

REPORT INFORMATION
  Report Type: Spontaneous
  Country: US (occurrence: US)
  Receive Date: 20190531
  Receipt Date: 20190531
  Transmission Date: 20190711
  Serious: Yes (Other)
  Sender: FDA-Public Use
  Company Number: US-ASTRAZENECA-2019SE80180

PATIENT
  Sex: Female

DRUGS (15)
  1. AMLODIPINE [Concomitant]
     Active Substance: AMLODIPINE BESYLATE
  2. FLOVENT [Concomitant]
     Active Substance: FLUTICASONE PROPIONATE
     Dosage: 110 MCG/ACTUATION
  3. FASLODEX [Suspect]
     Active Substance: FULVESTRANT
     Dosage: 500MG DAY 1, 15, 29 THEN MONTHLY
     Route: 030
     Dates: start: 20150303
  4. CHLORTHALIDONE. [Concomitant]
     Active Substance: CHLORTHALIDONE
  5. PREDNISONE. [Concomitant]
     Active Substance: PREDNISONE
  6. LEVOTHYROXINE. [Concomitant]
     Active Substance: LEVOTHYROXINE
  7. IBRANCE [Suspect]
     Active Substance: PALBOCICLIB
     Route: 048
     Dates: start: 20190313
  8. POTASSIUM CHLORIDE. [Concomitant]
     Active Substance: POTASSIUM CHLORIDE
     Dosage: 20 MEQ
  9. ANASTROZOLE. [Suspect]
     Active Substance: ANASTROZOLE
     Indication: BREAST CANCER FEMALE
     Route: 048
     Dates: start: 20131220
  10. OMEPRAZOLE. [Suspect]
     Active Substance: OMEPRAZOLE
     Route: 048
  11. FASLODEX [Suspect]
     Active Substance: FULVESTRANT
     Route: 030
     Dates: start: 20190313
  12. ZOMETA [Concomitant]
     Active Substance: ZOLEDRONIC ACID
     Indication: METASTASES TO BONE
     Route: 042
     Dates: start: 201408
  13. XGEVA [Concomitant]
     Active Substance: DENOSUMAB
     Route: 058
     Dates: start: 20150303
  14. CLOBETASOL [Concomitant]
     Active Substance: CLOBETASOL
  15. SIMVASTATIN. [Concomitant]
     Active Substance: SIMVASTATIN

REACTIONS (19)
  - Breast enlargement [Unknown]
  - Metastases to liver [Unknown]
  - Breast tenderness [Unknown]
  - Fatigue [Not Recovered/Not Resolved]
  - Nausea [Unknown]
  - Metastases to bone [Unknown]
  - Abdominal discomfort [Unknown]
  - Metastases to biliary tract [Unknown]
  - Back pain [Unknown]
  - Sleep disorder [Unknown]
  - Acute kidney injury [Unknown]
  - Rash [Unknown]
  - Abdominal distension [Unknown]
  - Constipation [Unknown]
  - Taste disorder [Unknown]
  - Decreased appetite [Unknown]
  - Arthralgia [Unknown]
  - Metastases to bone marrow [Unknown]
  - Pruritus [Unknown]

NARRATIVE: CASE EVENT DATE: 20140812
